FAERS Safety Report 16277426 (Version 1)
Quarter: 2019Q2

REPORT INFORMATION
  Report Type: Report from Study
  Country: IL (occurrence: IL)
  Receive Date: 20190506
  Receipt Date: 20190506
  Transmission Date: 20190711
  Serious: No
  Sender: FDA-Public Use
  Company Number: IL-ROCHE-2313204

PATIENT
  Sex: Female

DRUGS (1)
  1. OCREVUS [Suspect]
     Active Substance: OCRELIZUMAB
     Indication: RELAPSING MULTIPLE SCLEROSIS
     Route: 042
     Dates: start: 20190401

REACTIONS (4)
  - Cough [Not Recovered/Not Resolved]
  - Rhinitis [Recovering/Resolving]
  - Myalgia [Not Recovered/Not Resolved]
  - Oropharyngeal pain [Recovering/Resolving]
